FAERS Safety Report 22101622 (Version 1)
Quarter: 2023Q1

REPORT INFORMATION
  Report Type: Spontaneous
  Country: US (occurrence: US)
  Receive Date: 20230316
  Receipt Date: 20230316
  Transmission Date: 20230418
  Serious: Yes (Death, Life-Threatening, Hospitalization)
  Sender: FDA-Public Use
  Company Number: US-drreddys-LIT/USA/23/0162350

PATIENT
  Age: 14 Year
  Sex: Female

DRUGS (12)
  1. MINOCYCLINE HYDROCHLORIDE [Suspect]
     Active Substance: MINOCYCLINE HYDROCHLORIDE
     Indication: Confluent and reticulate papillomatosis
  2. DEXAMETHASONE [Suspect]
     Active Substance: DEXAMETHASONE
     Indication: Drug reaction with eosinophilia and systemic symptoms
  3. DEXAMETHASONE [Suspect]
     Active Substance: DEXAMETHASONE
     Indication: Haemophagocytic lymphohistiocytosis
  4. METHYLPREDNISOLONE [Suspect]
     Active Substance: METHYLPREDNISOLONE
     Indication: Haemophagocytic lymphohistiocytosis
     Dosage: 1GM DAILY FOR 3 DAYS
  5. METHYLPREDNISOLONE [Suspect]
     Active Substance: METHYLPREDNISOLONE
     Indication: Drug reaction with eosinophilia and systemic symptoms
  6. METHYLPREDNISOLONE [Suspect]
     Active Substance: METHYLPREDNISOLONE
     Indication: Immunosuppression
  7. ANAKINRA [Suspect]
     Active Substance: ANAKINRA
     Indication: Haemophagocytic lymphohistiocytosis
  8. ANAKINRA [Suspect]
     Active Substance: ANAKINRA
     Indication: Drug reaction with eosinophilia and systemic symptoms
  9. ANAKINRA [Suspect]
     Active Substance: ANAKINRA
     Indication: Immunosuppression
  10. SILTUXIMAB [Suspect]
     Active Substance: SILTUXIMAB
     Indication: Haemophagocytic lymphohistiocytosis
  11. SILTUXIMAB [Suspect]
     Active Substance: SILTUXIMAB
     Indication: Drug reaction with eosinophilia and systemic symptoms
  12. SILTUXIMAB [Suspect]
     Active Substance: SILTUXIMAB
     Indication: Immunosuppression

REACTIONS (11)
  - Hypotension [Fatal]
  - Cardiac arrest [Fatal]
  - Haemophagocytic lymphohistiocytosis [Unknown]
  - Condition aggravated [Unknown]
  - Drug reaction with eosinophilia and systemic symptoms [Unknown]
  - Drug ineffective for unapproved indication [Unknown]
  - Multiple organ dysfunction syndrome [Unknown]
  - Pneumonia [Unknown]
  - Acute kidney injury [Unknown]
  - Shock [Unknown]
  - Hepatic function abnormal [Unknown]
